FAERS Safety Report 9571173 (Version 2)
Quarter: 2013Q4

REPORT INFORMATION
  Report Type: Spontaneous
  Country: IT (occurrence: IT)
  Receive Date: 20131001
  Receipt Date: 20131003
  Transmission Date: 20140711
  Serious: Yes (Hospitalization)
  Sender: FDA-Public Use
  Company Number: PHHY2013IT108966

PATIENT
  Age: 92 Year
  Sex: Female

DRUGS (4)
  1. TAREG [Suspect]
     Dosage: 80 MG, DAILY
     Dates: start: 20130812, end: 20130821
  2. MODURETIC [Suspect]
     Dosage: 2.5 MG, DAILY
     Dates: start: 20110801, end: 20130821
  3. CARDIOASPIRIN [Concomitant]
  4. PANTORC [Concomitant]

REACTIONS (3)
  - Hyponatraemia [Recovered/Resolved]
  - Vomiting [Recovered/Resolved]
  - Syncope [Recovered/Resolved]
